FAERS Safety Report 8122821-4 (Version None)
Quarter: 2012Q1

REPORT INFORMATION
  Report Type: 
  Country: None (occurrence: None)
  Receive Date: 20120208
  Receipt Date: 20120202
  Transmission Date: 20120608
  Serious: Yes (Life-Threatening, Other)
  Sender: FDA-Public Use
  Company Number: GB-PFIZER INC-2012029862

PATIENT
  Age: 65 Year
  Sex: Male

DRUGS (4)
  1. FENTANYL [Concomitant]
     Indication: GENERAL ANAESTHESIA
     Dosage: 100 UG, UNK
     Route: 042
     Dates: start: 20111118, end: 20111118
  2. ONDANSETRON HCL [Suspect]
     Indication: GENERAL ANAESTHESIA
     Dosage: 4 MG, UNK
     Route: 042
     Dates: start: 20111118, end: 20111118
  3. SALBUTAMOL [Concomitant]
     Indication: ASTHMA
     Dosage: UNK
     Route: 055
  4. BECLOMETHASONE DIPROPIONATE [Concomitant]
     Indication: ASTHMA
     Dosage: UNK
     Route: 055

REACTIONS (4)
  - TRYPTASE INCREASED [None]
  - HYPOTENSION [None]
  - LOSS OF CONSCIOUSNESS [None]
  - THROAT IRRITATION [None]
